FAERS Safety Report 12931945 (Version 3)
Quarter: 2016Q4

REPORT INFORMATION
  Report Type: Spontaneous
  Country: US (occurrence: US)
  Receive Date: 20161111
  Receipt Date: 20161124
  Transmission Date: 20170207
  Serious: No
  Sender: FDA-Public Use
  Company Number: US-HORIZON-RAV-0240-2016

PATIENT
  Age: 69 Year
  Sex: Female

DRUGS (3)
  1. LACTULOSE. [Concomitant]
     Active Substance: LACTULOSE
  2. RAVICTI [Suspect]
     Active Substance: GLYCEROL PHENYLBUTYRATE
     Indication: ORNITHINE TRANSCARBAMOYLASE DEFICIENCY
     Dosage: 5 ML TID, REDUCED TO 4 ML TID
  3. CITRULLINE [Concomitant]
     Active Substance: CITRULLINE

REACTIONS (3)
  - Headache [Recovered/Resolved]
  - Decreased appetite [Unknown]
  - Constipation [Unknown]
